FAERS Safety Report 19103212 (Version 1)
Quarter: 2021Q2

REPORT INFORMATION
  Report Type: Report from Study
  Country: NL (occurrence: NL)
  Receive Date: 20210407
  Receipt Date: 20210407
  Transmission Date: 20210717
  Serious: Yes (Hospitalization)
  Sender: FDA-Public Use
  Company Number: NL-BAYER-2021-116330

PATIENT
  Age: 77 Year

DRUGS (9)
  1. PREDNISONE. [Suspect]
     Active Substance: PREDNISONE
     Indication: METASTASIS
     Dosage: TWICE A DAY
     Dates: start: 20210207
  2. POTASSIUM [Concomitant]
     Active Substance: POTASSIUM
     Dosage: 120 MMOL, QD
     Route: 042
     Dates: start: 20210204
  3. DOCETAXEL. [Suspect]
     Active Substance: DOCETAXEL
     Indication: HORMONE-REFRACTORY PROSTATE CANCER
     Dosage: UNK
     Dates: start: 20200902, end: 20210126
  4. GENTAMICINE [GENTAMICIN] [Concomitant]
     Active Substance: GENTAMICIN
     Dosage: 600 MG, ONCE
     Route: 042
     Dates: start: 20210204, end: 20210204
  5. PREDNISONE. [Suspect]
     Active Substance: PREDNISONE
     Indication: HORMONE-REFRACTORY PROSTATE CANCER
     Dosage: TWICE A DAY
     Dates: start: 20200824, end: 20210204
  6. RADIUM?223 DICHLORIDE [Suspect]
     Active Substance: RADIUM RA-223 DICHLORIDE
     Indication: HORMONE-REFRACTORY PROSTATE CANCER
     Dosage: UNK
     Dates: start: 20200903, end: 20210106
  7. RADIUM?223 DICHLORIDE [Suspect]
     Active Substance: RADIUM RA-223 DICHLORIDE
     Indication: METASTASIS
  8. DOCETAXEL. [Suspect]
     Active Substance: DOCETAXEL
     Indication: METASTASIS
  9. HYDROCORTISONE. [Concomitant]
     Active Substance: HYDROCORTISONE
     Dosage: 200 MG, QD
     Route: 042
     Dates: start: 20210204

REACTIONS (3)
  - Febrile neutropenia [Recovered/Resolved]
  - Malaise [Not Recovered/Not Resolved]
  - Febrile neutropenia [Not Recovered/Not Resolved]

NARRATIVE: CASE EVENT DATE: 20210204
